FAERS Safety Report 9527841 (Version 2)
Quarter: 2013Q4

REPORT INFORMATION
  Report Type: Spontaneous
  Country: US (occurrence: US)
  Receive Date: 20130917
  Receipt Date: 20131023
  Transmission Date: 20140711
  Serious: No
  Sender: FDA-Public Use
  Company Number: US-PFIZER INC-2013265338

PATIENT
  Age: 65 Year
  Sex: Female
  Weight: 62.13 kg

DRUGS (2)
  1. HEPARIN SODIUM [Suspect]
     Dosage: UNK
  2. LISINOPRIL [Concomitant]
     Indication: HYPERTENSION
     Dosage: UNK

REACTIONS (1)
  - Cystitis [Not Recovered/Not Resolved]
